FAERS Safety Report 6447487-0 (Version None)
Quarter: 2009Q4

REPORT INFORMATION
  Report Type: 
  Country: None (occurrence: None)
  Receive Date: 20091119
  Receipt Date: 20090223
  Transmission Date: 20100525
  Serious: Yes (Hospitalization)
  Sender: FDA-Public Use
  Company Number: US-AMGEN-QUU310325

PATIENT
  Sex: Female

DRUGS (5)
  1. ENBREL [Suspect]
     Indication: RHEUMATOID ARTHRITIS
     Route: 058
     Dates: start: 20080208
  2. METHOTREXATE [Concomitant]
     Dates: start: 20080128
  3. FOLIC ACID [Concomitant]
     Dates: start: 20080128
  4. PREDNISONE [Concomitant]
     Dates: start: 20090209
  5. FOSAMAX [Concomitant]
     Dates: start: 20080128

REACTIONS (2)
  - ARTHRALGIA [None]
  - DYSPNOEA [None]
